FAERS Safety Report 19881600 (Version 2)
Quarter: 2021Q4

REPORT INFORMATION
  Report Type: Spontaneous
  Country: US (occurrence: US)
  Receive Date: 20210925
  Receipt Date: 20211207
  Transmission Date: 20220303
  Serious: Yes (Other)
  Sender: FDA-Public Use
  Company Number: US-NOVARTISPH-NVSC2021US212817

PATIENT
  Age: 54 Year
  Sex: Male

DRUGS (17)
  1. BEOVU [Suspect]
     Active Substance: BROLUCIZUMAB-DBLL
     Indication: Neovascular age-related macular degeneration
     Dosage: UNK (RIGHT EYE)
     Route: 031
     Dates: start: 20200605
  2. BEOVU [Suspect]
     Active Substance: BROLUCIZUMAB-DBLL
     Dosage: UNK (LEFT EYE)
     Route: 031
     Dates: start: 20200623
  3. BEOVU [Suspect]
     Active Substance: BROLUCIZUMAB-DBLL
     Dosage: UNK (RIGHT EYE)
     Route: 031
     Dates: start: 20200728
  4. BEOVU [Suspect]
     Active Substance: BROLUCIZUMAB-DBLL
     Dosage: UNK (LEFT EYE) (MAINTAIN EVERY 8 WEEKS)
     Route: 031
     Dates: start: 20200818
  5. BEOVU [Suspect]
     Active Substance: BROLUCIZUMAB-DBLL
     Dosage: UNK (RIGHT EYE)
     Route: 031
     Dates: start: 20200914
  6. BEOVU [Suspect]
     Active Substance: BROLUCIZUMAB-DBLL
     Dosage: UNK (LEFT EYE) (MAINTAIN EVERY 8 WEEKS)
     Route: 031
     Dates: start: 20201013
  7. BEOVU [Suspect]
     Active Substance: BROLUCIZUMAB-DBLL
     Dosage: UNK (RIGHT EYE)
     Route: 031
     Dates: start: 20201110
  8. BEOVU [Suspect]
     Active Substance: BROLUCIZUMAB-DBLL
     Dosage: UNK (LEFT EYE)
     Route: 031
     Dates: start: 20201208
  9. BEOVU [Suspect]
     Active Substance: BROLUCIZUMAB-DBLL
     Dosage: UNK (RIGHT EYE)
     Route: 031
     Dates: start: 20210105
  10. BEOVU [Suspect]
     Active Substance: BROLUCIZUMAB-DBLL
     Dosage: UNK (LEFT EYE)
     Route: 031
     Dates: start: 20210211
  11. BEOVU [Suspect]
     Active Substance: BROLUCIZUMAB-DBLL
     Dosage: UNK (RIGHT EYE)
     Route: 031
     Dates: start: 20210302
  12. BEOVU [Suspect]
     Active Substance: BROLUCIZUMAB-DBLL
     Dosage: UNK (LEFT EYE)
     Route: 031
     Dates: start: 20210420
  13. BEOVU [Suspect]
     Active Substance: BROLUCIZUMAB-DBLL
     Dosage: UNK (RIGHT EYE)
     Route: 031
     Dates: start: 20210427
  14. BEOVU [Suspect]
     Active Substance: BROLUCIZUMAB-DBLL
     Dosage: UNK (RIGHT EYE)
     Route: 031
     Dates: start: 20210629
  15. BEOVU [Suspect]
     Active Substance: BROLUCIZUMAB-DBLL
     Dosage: UNK (LEFT EYE)
     Route: 031
     Dates: start: 20210713
  16. ATORVASTATIN [Concomitant]
     Active Substance: ATORVASTATIN
     Indication: Product used for unknown indication
     Dosage: 1 DF, QD
     Route: 048
  17. SIMVASTATIN [Concomitant]
     Active Substance: SIMVASTATIN
     Indication: Product used for unknown indication
     Dosage: UNK
     Route: 065

REACTIONS (1)
  - Subretinal fluid [Recovered/Resolved]

NARRATIVE: CASE EVENT DATE: 20200728
